FAERS Safety Report 4320839-0 (Version None)
Quarter: 2004Q1

REPORT INFORMATION
  Report Type: 
  Country: None (occurrence: None)
  Receive Date: 20040315
  Receipt Date: 20030711
  Transmission Date: 20041129
  Serious: Yes (Other)
  Sender: FDA-Public Use
  Company Number: PHEH2003US04165

PATIENT
  Age: 30 Year
  Sex: Male

DRUGS (1)
  1. TRILEPTAL [Suspect]
     Indication: POST-TRAUMATIC EPILEPSY
     Dosage: 1200 MG, BID, ORAL
     Route: 048
     Dates: start: 20020521

REACTIONS (2)
  - CONFUSIONAL STATE [None]
  - LOSS OF CONSCIOUSNESS [None]
